FAERS Safety Report 23391353 (Version 1)
Quarter: 2024Q1

REPORT INFORMATION
  Report Type: Spontaneous
  Country: ES (occurrence: ES)
  Receive Date: 20240111
  Receipt Date: 20240111
  Transmission Date: 20240409
  Serious: Yes (Hospitalization, Other)
  Sender: FDA-Public Use
  Company Number: ES-JUVISE-2023000438

PATIENT
  Age: 13 Year
  Sex: Female

DRUGS (3)
  1. BICALUTAMIDE [Suspect]
     Active Substance: BICALUTAMIDE
     Indication: Product used for unknown indication
     Dosage: UNK
     Route: 065
  2. DIENOGEST\ESTRADIOL [Suspect]
     Active Substance: DIENOGEST\ESTRADIOL
     Indication: Product used for unknown indication
     Dosage: UNK
     Route: 065
  3. TACROLIMUS [Suspect]
     Active Substance: TACROLIMUS
     Indication: Product used for unknown indication
     Dosage: UNK
     Route: 061

REACTIONS (3)
  - Torsade de pointes [Recovered/Resolved]
  - Labelled drug-drug interaction medication error [Unknown]
  - Off label use [Unknown]
